FAERS Safety Report 7647852-X (Version None)
Quarter: 2011Q3

REPORT INFORMATION
  Report Type: 
  Country: None (occurrence: None)
  Receive Date: 20110801
  Receipt Date: 20110720
  Transmission Date: 20111222
  Serious: Yes (Other)
  Sender: FDA-Public Use
  Company Number: AU-PFIZER INC-2011166092

PATIENT
  Age: 67 Year
  Sex: Female

DRUGS (2)
  1. TRAMADOL HCL [Suspect]
     Dosage: UNKNOWN
  2. PRISTIQ [Suspect]
     Dosage: UNKNOWN

REACTIONS (2)
  - CONVULSION [None]
  - DRUG DEPENDENCE [None]
